FAERS Safety Report 4440525-6 (Version None)
Quarter: 2004Q3

REPORT INFORMATION
  Report Type: 
  Country: None (occurrence: None)
  Receive Date: 20040826
  Receipt Date: 20030908
  Transmission Date: 20050211
  Serious: Yes (Other)
  Sender: FDA-Public Use
  Company Number: 2003-06046

PATIENT
  Age: 4 Year
  Sex: Male

DRUGS (12)
  1. VISTIDE [Suspect]
     Indication: BK VIRUS INFECTION
     Dosage: 0.25 MG/KG, EVERY 2 WEEKS, INTRAVENOUS
     Route: 042
     Dates: start: 20030630
  2. PREDNISONE [Concomitant]
  3. SEPTRA (SHOHL'S SOLUTION) [Concomitant]
  4. TACROLIMUS (TACROLIMUS) [Concomitant]
  5. REGLAN [Concomitant]
  6. ZANTAC [Concomitant]
  7. KAYEXALATE [Concomitant]
  8. MAGNESIUM SULFATE [Concomitant]
  9. NORVASC [Concomitant]
  10. ATENOLOL [Concomitant]
  11. NYSTATIN [Concomitant]
  12. ROCALTROL [Concomitant]

REACTIONS (1)
  - NEUTROPENIA [None]
